FAERS Safety Report 7593214-3 (Version None)
Quarter: 2011Q2

REPORT INFORMATION
  Report Type: 
  Country: None (occurrence: None)
  Receive Date: 20110628
  Receipt Date: 20110617
  Transmission Date: 20111010
  Serious: Yes (Other)
  Sender: FDA-Public Use
  Company Number: ACO_21155_2010

PATIENT
  Age: 48 Year
  Sex: Female

DRUGS (3)
  1. CYMBALTA [Suspect]
     Indication: DEPRESSION
     Dosage: 90 MG
  2. TIZANIDINE HYDROCHLORIDE [Suspect]
     Indication: MUSCLE SPASMS
     Dosage: 4 MG
  3. TEMESTA /00273201/ (LORAZEPAM) [Suspect]
     Indication: ANXIETY
     Dosage: 5 MG/D

REACTIONS (2)
  - PREGNANCY [None]
  - DRUG EXPOSURE DURING PREGNANCY [None]
